FAERS Safety Report 10185648 (Version 2)
Quarter: 2014Q2

REPORT INFORMATION
  Report Type: Spontaneous
  Country: JP (occurrence: JP)
  Receive Date: 20140521
  Receipt Date: 20140610
  Transmission Date: 20141212
  Serious: Yes (Hospitalization, Other)
  Sender: FDA-Public Use
  Company Number: JP-BAXTER-2014BAX024490

PATIENT
  Sex: Male
  Weight: 30 kg

DRUGS (3)
  1. ADVATE 500 [Suspect]
     Indication: HAEMOSTASIS
     Route: 042
     Dates: start: 2014
  2. ADVATE 500 [Suspect]
     Indication: HAEMORRHAGE INTRACRANIAL
  3. ADVATE 500 [Suspect]
     Indication: FACTOR VIII DEFICIENCY

REACTIONS (1)
  - Device related infection [Unknown]
